FAERS Safety Report 18481761 (Version 1)
Quarter: 2020Q4

REPORT INFORMATION
  Report Type: Spontaneous
  Country: NL (occurrence: NL)
  Receive Date: 20201109
  Receipt Date: 20201109
  Transmission Date: 20210114
  Serious: Yes (Death, Other)
  Sender: FDA-Public Use
  Company Number: NL-NANJING KING-FRIEND BIOCHEMICAL PHARMACEUTICAL CO. LTD.-2020NKF00055

PATIENT
  Age: 82 Year
  Sex: Female

DRUGS (3)
  1. CLOPIDOGREL [Suspect]
     Active Substance: CLOPIDOGREL BISULFATE
     Indication: ACUTE CORONARY SYNDROME
     Route: 065
  2. ENOXAPARIN SODIUM. [Suspect]
     Active Substance: ENOXAPARIN SODIUM
     Indication: ACUTE CORONARY SYNDROME
     Dosage: 1 MG/KG
     Route: 058
  3. ASPIRIN. [Suspect]
     Active Substance: ASPIRIN
     Indication: ACUTE CORONARY SYNDROME
     Route: 065

REACTIONS (3)
  - Shock haemorrhagic [Not Recovered/Not Resolved]
  - Abdominal wall haematoma [Not Recovered/Not Resolved]
  - Multiple organ dysfunction syndrome [Fatal]
